FAERS Safety Report 5373379-4 (Version None)
Quarter: 2007Q2

REPORT INFORMATION
  Report Type: 
  Country: None (occurrence: None)
  Receive Date: 20070628
  Receipt Date: 20070618
  Transmission Date: 20071010
  Serious: Yes (Hospitalization)
  Sender: FDA-Public Use
  Company Number: JP-JNJFOC-20070600470

PATIENT
  Age: 78 Year
  Sex: Female

DRUGS (11)
  1. RISPERDAL [Suspect]
     Route: 048
  2. RISPERDAL [Suspect]
     Indication: SENILE PSYCHOSIS
     Route: 048
  3. HALOPERIDOL INTENSOL [Concomitant]
     Route: 048
  4. HALOPERIDOL INTENSOL [Concomitant]
     Route: 048
  5. AKINETON [Concomitant]
     Route: 048
  6. DEPROMEL [Concomitant]
     Route: 048
  7. ZOLPIDEM [Concomitant]
     Route: 048
  8. ASPIRIN [Concomitant]
     Route: 048
  9. DIOVAN [Concomitant]
  10. ISOSORBIDE DINITRATE [Concomitant]
     Route: 048
  11. AMARYL [Concomitant]
     Route: 048

REACTIONS (3)
  - BLOOD GLUCOSE INCREASED [None]
  - GASTROINTESTINAL HYPOMOTILITY [None]
  - OEDEMA [None]
